FAERS Safety Report 16540259 (Version 1)
Quarter: 2019Q3

REPORT INFORMATION
  Report Type: Report from Study
  Country: MX (occurrence: MX)
  Receive Date: 20190708
  Receipt Date: 20190708
  Transmission Date: 20191004
  Serious: Yes (Other)
  Sender: FDA-Public Use
  Company Number: PHHY2018MX107145

PATIENT
  Sex: Female

DRUGS (1)
  1. GALVUS MET [Suspect]
     Active Substance: METFORMIN HYDROCHLORIDE\VILDAGLIPTIN
     Indication: PRODUCT USED FOR UNKNOWN INDICATION
     Dosage: (METFORMIN 850 MG, VILDAGLIPTIN 50 MG)
     Route: 065

REACTIONS (8)
  - Aphasia [Unknown]
  - Asphyxia [Unknown]
  - Headache [Unknown]
  - Blood glucose increased [Unknown]
  - Back pain [Unknown]
  - Throat tightness [Unknown]
  - Discomfort [Unknown]
  - Pain [Unknown]
